FAERS Safety Report 20510202 (Version 1)
Quarter: 2022Q1

REPORT INFORMATION
  Report Type: Spontaneous
  Country: US (occurrence: US)
  Receive Date: 20220224
  Receipt Date: 20220224
  Transmission Date: 20220423
  Serious: No
  Sender: FDA-Public Use
  Company Number: US-CELGENE-USA-20220206119

PATIENT
  Age: 44 Year
  Sex: Male
  Weight: 94.387 kg

DRUGS (1)
  1. POMALYST [Suspect]
     Active Substance: POMALIDOMIDE
     Indication: Plasma cell myeloma
     Dosage: 4 MILLIGRAM
     Route: 048

REACTIONS (3)
  - Sinus disorder [Recovered/Resolved]
  - Nasopharyngitis [Recovered/Resolved]
  - Cough [Recovered/Resolved]

NARRATIVE: CASE EVENT DATE: 20220204
